FAERS Safety Report 6331734-X (Version None)
Quarter: 2009Q3

REPORT INFORMATION
  Report Type: 
  Country: None (occurrence: None)
  Receive Date: 20090827
  Receipt Date: 20090819
  Transmission Date: 20100115
  Serious: Yes (Life-Threatening, Hospitalization)
  Sender: FDA-Public Use
  Company Number: PL-AMGEN-QUU360764

PATIENT
  Sex: Female

DRUGS (10)
  1. NEULASTA [Suspect]
     Indication: CHEMOTHERAPY
     Route: 058
     Dates: start: 20090730
  2. ENCORTON [Concomitant]
     Route: 048
     Dates: start: 20090730, end: 20090801
  3. ALLOPURINOL [Concomitant]
     Route: 048
     Dates: start: 20050730
  4. OMEPRAZOLE [Concomitant]
     Route: 048
  5. FRAXIPARINE [Concomitant]
     Route: 058
  6. RITUXIMAB [Concomitant]
  7. CYCLOPHOSPHAMIDE [Concomitant]
  8. DOXORUBICIN HYDROCHLORIDE [Concomitant]
  9. VINCRISTINE [Concomitant]
  10. PREDNISOLONE [Concomitant]

REACTIONS (1)
  - FEBRILE NEUTROPENIA [None]
